FAERS Safety Report 5072897-6 (Version None)
Quarter: 2006Q3

REPORT INFORMATION
  Report Type: 
  Country: None (occurrence: None)
  Receive Date: 20060807
  Receipt Date: 20060728
  Transmission Date: 20061208
  Serious: Yes (Other)
  Sender: FDA-Public Use
  Company Number: GB-BOEHRINGER INGELHEIM PHARMACEUTICALS, INC.-2006-DE-03983GD

PATIENT
  Age: 66 Year
  Sex: Male

DRUGS (5)
  1. MEXILETINE HYDROCHLORIDE [Suspect]
     Indication: VENTRICULAR TACHYCARDIA
  2. MAGNESIUM [Suspect]
     Indication: VENTRICULAR TACHYCARDIA
     Route: 042
  3. AMIODARONE HCL [Suspect]
     Indication: VENTRICULAR TACHYCARDIA
     Route: 048
  4. BISOPROLOL FUMARATE [Suspect]
     Indication: VENTRICULAR TACHYCARDIA
     Dosage: OPTIMIZED DOSES
  5. RAMIPRIL [Suspect]
     Indication: VENTRICULAR TACHYCARDIA
     Dosage: OPTIMIZED DOSES

REACTIONS (1)
  - DRUG INEFFECTIVE [None]
